FAERS Safety Report 15043591 (Version 1)
Quarter: 2018Q2

REPORT INFORMATION
  Report Type: Report from Study
  Country: BR (occurrence: BR)
  Receive Date: 20180621
  Receipt Date: 20180621
  Transmission Date: 20180711
  Serious: Yes (Other)
  Sender: FDA-Public Use
  Company Number: PHHY2017BR112967

PATIENT
  Sex: Female
  Weight: 76 kg

DRUGS (3)
  1. SIMVASTATIN. [Suspect]
     Active Substance: SIMVASTATIN
     Indication: BLOOD CHOLESTEROL ABNORMAL
     Route: 065
  2. SANDOSTATIN LAR DEPOT [Suspect]
     Active Substance: OCTREOTIDE ACETATE
     Dosage: 30 MG, QMO (ONCE A MONTH)
     Route: 030
     Dates: start: 2013
  3. SANDOSTATIN LAR DEPOT [Suspect]
     Active Substance: OCTREOTIDE ACETATE
     Indication: ACROMEGALY
     Dosage: 20 MG, QMO (ONCE A MONTH)
     Route: 030
     Dates: start: 2013

REACTIONS (13)
  - Breast pain [Unknown]
  - Anxiety [Unknown]
  - Hormone level abnormal [Not Recovered/Not Resolved]
  - Swelling face [Unknown]
  - Weight decreased [Recovering/Resolving]
  - Hunger [Unknown]
  - Head injury [Unknown]
  - Feeling abnormal [Unknown]
  - Brain neoplasm [Unknown]
  - Movement disorder [Unknown]
  - Dizziness [Unknown]
  - Headache [Unknown]
  - Drug ineffective [Unknown]
